FAERS Safety Report 25251795 (Version 1)
Quarter: 2025Q2

REPORT INFORMATION
  Report Type: Report from Study
  Country: NL (occurrence: NL)
  Receive Date: 20250429
  Receipt Date: 20250429
  Transmission Date: 20250716
  Serious: Yes (Other)
  Sender: AMGEN
  Company Number: NL-AMGEN-NLDSL2025082168

PATIENT
  Sex: Male

DRUGS (1)
  1. REPATHA [Suspect]
     Active Substance: EVOLOCUMAB
     Indication: Hypercholesterolaemia
     Dosage: 140 MILLIGRAM PER MILLILITRE, Q2WK
     Route: 065

REACTIONS (4)
  - Syncope [Not Recovered/Not Resolved]
  - Liver function test increased [Unknown]
  - Muscle spasms [Unknown]
  - Fatigue [Unknown]
